FAERS Safety Report 5317248-4 (Version None)
Quarter: 2007Q2

REPORT INFORMATION
  Report Type: 
  Country: None (occurrence: None)
  Receive Date: 20070504
  Receipt Date: 20070427
  Transmission Date: 20071010
  Serious: Yes (Hospitalization)
  Sender: FDA-Public Use
  Company Number: GB-BOEHRINGER INGELHEIM PHARMACEUTICALS, INC.-2007-UK-01403UK

PATIENT
  Age: 9 Month
  Sex: Male
  Weight: 11.17 kg

DRUGS (1)
  1. ALUPENT [Suspect]
     Indication: COUGH
     Route: 048
     Dates: start: 20070418, end: 20070418

REACTIONS (2)
  - LIP SWELLING [None]
  - RASH MACULO-PAPULAR [None]
